FAERS Safety Report 5478189-5 (Version None)
Quarter: 2007Q4

REPORT INFORMATION
  Report Type: 
  Country: None (occurrence: None)
  Receive Date: 20071005
  Receipt Date: 20070402
  Transmission Date: 20080405
  Serious: No
  Sender: FDA-Public Use
  Company Number: US-BRISTOL-MYERS SQUIBB COMPANY-13735949

PATIENT
  Age: 78 Year
  Weight: 68 kg

DRUGS (6)
  1. AVAPRO [Suspect]
     Route: 048
     Dates: start: 19990101, end: 20070301
  2. AVAPRO [Suspect]
     Route: 048
     Dates: start: 19990101, end: 20070301
  3. SYNTHROID [Concomitant]
  4. CATAPRES [Concomitant]
  5. CARDURA [Concomitant]
  6. HYDROCHLOROTHIAZIDE [Concomitant]

REACTIONS (2)
  - BLOOD CREATININE INCREASED [None]
  - BLOOD UREA INCREASED [None]
